FAERS Safety Report 26091399 (Version 1)
Quarter: 2025Q4

REPORT INFORMATION
  Report Type: Spontaneous
  Country: US (occurrence: US)
  Receive Date: 20251126
  Receipt Date: 20251126
  Transmission Date: 20260118
  Serious: No
  Sender: LEO PHARM
  Company Number: US-LEO Pharma-384441

PATIENT
  Age: 19 Year
  Sex: Male

DRUGS (1)
  1. ADBRY [Suspect]
     Active Substance: TRALOKINUMAB-LDRM
     Indication: Product used for unknown indication
     Route: 058

REACTIONS (5)
  - Nasal congestion [Unknown]
  - Skin swelling [Unknown]
  - Headache [Unknown]
  - Oropharyngeal pain [Unknown]
  - Dry skin [Unknown]
